FAERS Safety Report 12990889 (Version 3)
Quarter: 2017Q1

REPORT INFORMATION
  Report Type: Report from Study
  Country: US (occurrence: US)
  Receive Date: 20161201
  Receipt Date: 20170110
  Transmission Date: 20170428
  Serious: Yes (Death, Life-Threatening, Hospitalization, Disabling, Other)
  Sender: FDA-Public Use
  Company Number: US-009507513-1611USA013916

PATIENT
  Age: 80 Year
  Sex: Male
  Weight: 76.55 kg

DRUGS (1)
  1. KEYTRUDA [Suspect]
     Active Substance: PEMBROLIZUMAB
     Indication: NON-SMALL CELL LUNG CANCER
     Dosage: UNK
     Route: 042
     Dates: start: 20160202, end: 20160920

REACTIONS (4)
  - Malignant neoplasm progression [Unknown]
  - Death [Fatal]
  - Malignant neoplasm progression [Unknown]
  - Adverse event [Unknown]

NARRATIVE: CASE EVENT DATE: 201606
